FAERS Safety Report 8366348-3 (Version None)
Quarter: 2012Q2

REPORT INFORMATION
  Report Type: 
  Country: None (occurrence: None)
  Receive Date: 20120517
  Receipt Date: 20120508
  Transmission Date: 20120825
  Serious: Yes (Other)
  Sender: FDA-Public Use
  Company Number: CA-ASTRAZENECA-2012SE25235

PATIENT
  Age: 63 Year
  Sex: Female
  Weight: 51 kg

DRUGS (4)
  1. LIPITOR [Interacting]
     Indication: DYSLIPIDAEMIA
     Route: 048
     Dates: start: 20111101, end: 20120301
  2. BRILINTA [Suspect]
     Indication: ANGIOPLASTY
     Route: 048
     Dates: start: 20120101
  3. TENORMIN [Concomitant]
     Route: 048
     Dates: start: 19950101
  4. ASPIRIN [Concomitant]
     Route: 048
     Dates: start: 20111101

REACTIONS (3)
  - BLOOD CREATINE PHOSPHOKINASE INCREASED [None]
  - DRUG INTERACTION [None]
  - MYALGIA [None]
